FAERS Safety Report 9188467 (Version 1)
Quarter: 2012Q4

REPORT INFORMATION
  Report Type: 
  Country: US (occurrence: US)
  Receive Date: 20121205
  Receipt Date: 20121205
  Transmission Date: 20130627
  Serious: Yes (Hospitalization)
  Sender: FDA-Public Use
  Company Number: US-BAYER-2012-125412

PATIENT
  Age: 27 Year
  Sex: Female

DRUGS (2)
  1. NEXAVAR [Suspect]
     Indication: BILE DUCT CANCER
     Dosage: 400 mg, BID
  2. NEXAVAR [Suspect]
     Indication: BILE DUCT CANCER
     Dosage: 200 mg, BID

REACTIONS (5)
  - Hypotension [None]
  - Syncope [None]
  - Dehydration [None]
  - Diarrhoea [None]
  - Off label use [None]
